FAERS Safety Report 4357585-3 (Version None)
Quarter: 2004Q2

REPORT INFORMATION
  Report Type: 
  Country: None (occurrence: None)
  Receive Date: 20040510
  Receipt Date: 20040426
  Transmission Date: 20050107
  Serious: Yes (Hospitalization, Other)
  Sender: FDA-Public Use
  Company Number: HQWYE336002APR04

PATIENT
  Age: 76 Year
  Sex: Male
  Weight: 76 kg

DRUGS (9)
  1. MYLOTARG [Suspect]
     Indication: ACUTE MYELOID LEUKAEMIA
     Dosage: 10 + 15 MG 1X PER 1 DAY, INTRAVENOUS
     Route: 042
     Dates: start: 20040326, end: 20040326
  2. MYLOTARG [Suspect]
     Indication: ACUTE MYELOID LEUKAEMIA
     Dosage: 10 + 15 MG 1X PER 1 DAY, INTRAVENOUS
     Route: 042
     Dates: start: 20040409, end: 20040409
  3. PANTOPRAZOLE (PANTOPRAZOLE) [Concomitant]
  4. PAXIL [Concomitant]
  5. ENALAPRIL (ENALAPRIL0 [Concomitant]
  6. VITAMIN E [Concomitant]
  7. SIMVASTATIN 9SIMVASTATN0 [Concomitant]
  8. CARDARONE (AMIODARONE) [Concomitant]
  9. FERROUS SULFATE TAB [Concomitant]

REACTIONS (4)
  - CATHETER SITE HAEMORRHAGE [None]
  - ENTEROBACTER BACTERAEMIA [None]
  - FEBRILE NEUTROPENIA [None]
  - PLATELET COUNT DECREASED [None]
